FAERS Safety Report 17175499 (Version 1)
Quarter: 2019Q4

REPORT INFORMATION
  Report Type: Spontaneous
  Country: US (occurrence: US)
  Receive Date: 20191219
  Receipt Date: 20191219
  Transmission Date: 20200122
  Serious: Yes (Disabling)
  Sender: FDA-Public Use
  Company Number: None

PATIENT
  Age: 46 Year
  Sex: Male

DRUGS (1)
  1. KRATOM [Suspect]
     Active Substance: HERBALS\MITRAGYNINE
     Indication: PAIN
     Dates: start: 20180801, end: 20191219

REACTIONS (6)
  - Weight decreased [None]
  - Drug dependence [None]
  - Depression [None]
  - Product complaint [None]
  - Emergency care [None]
  - Mood swings [None]

NARRATIVE: CASE EVENT DATE: 20180801
